FAERS Safety Report 15150239 (Version 1)
Quarter: 2018Q3

REPORT INFORMATION
  Report Type: Spontaneous
  Country: DE (occurrence: DE)
  Receive Date: 20180716
  Receipt Date: 20180716
  Transmission Date: 20181010
  Serious: Yes (Hospitalization)
  Sender: FDA-Public Use
  Company Number: DE-US WORLDMEDS, LLC-STA_00017372

PATIENT
  Age: 73 Year
  Sex: Female

DRUGS (7)
  1. CIPRAMIL 30 MG [Concomitant]
  2. LEVOCOMP 100/25 MG [Concomitant]
  3. APOMORPHINE HYDROCHLORIDE [Suspect]
     Active Substance: APOMORPHINE HYDROCHLORIDE
     Indication: PRODUCT USED FOR UNKNOWN INDICATION
     Dosage: 22HR/DAY
     Route: 058
     Dates: start: 20080801
  4. AZILECT [Concomitant]
     Active Substance: RASAGILINE MESYLATE
  5. SEROQUEL 100 [Concomitant]
  6. MIRTAZAPINE. [Concomitant]
     Active Substance: MIRTAZAPINE
  7. NACOM 100 MG [Concomitant]

REACTIONS (14)
  - Anxiety [Unknown]
  - Depressed mood [Unknown]
  - Sleep disorder [Unknown]
  - Memory impairment [Unknown]
  - Injection site nodule [Not Recovered/Not Resolved]
  - Fall [Unknown]
  - Disturbance in attention [Unknown]
  - Osteoarthritis [Unknown]
  - Arthrodesis [Unknown]
  - Accidental overdose [Unknown]
  - Mobility decreased [Unknown]
  - Dysphonia [Unknown]
  - Injection site inflammation [Unknown]
  - Induration [Recovering/Resolving]

NARRATIVE: CASE EVENT DATE: 20080801
